FAERS Safety Report 8927535 (Version 1)
Quarter: 2012Q4

REPORT INFORMATION
  Report Type: 
  Country: US (occurrence: US)
  Receive Date: 20121127
  Receipt Date: 20121127
  Transmission Date: 20130627
  Serious: Yes (Other)
  Sender: FDA-Public Use
  Company Number: US-BAYER-2012-121886

PATIENT
  Sex: Female

DRUGS (23)
  1. BETASERON [Suspect]
     Dosage: 0.25 ml, QOD
     Route: 058
  2. BETASERON [Suspect]
     Dosage: 0.5 ml, QOD
     Route: 058
  3. BETASERON [Suspect]
     Dosage: 0.75 ml, QOD
     Route: 058
  4. BETASERON [Suspect]
     Dosage: 1 ml, QOD
     Route: 058
  5. SINGULAIR [Concomitant]
     Dosage: 10 mg, UNK
  6. DETROL LA [Concomitant]
     Dosage: 4 mg, UNK
  7. ASTELIN [Concomitant]
     Dosage: 137 ?g, UNK
  8. TOPAMAX [Concomitant]
     Dosage: 100 mg, UNK
  9. FLUCONAZOLE [Concomitant]
     Dosage: 100 mg, UNK
  10. HYDROMORPHONE [Concomitant]
     Dosage: 4 mg, UNK
  11. CARAFATE [Concomitant]
     Dosage: 1 g, UNK
  12. LAMOTRIGINE [Concomitant]
     Dosage: 25 mg, UNK
  13. VALIUM [Concomitant]
     Dosage: 2 mg, UNK
  14. BACLOFEN [Concomitant]
     Dosage: 10 mg, UNK
  15. IMITREX [Concomitant]
     Dosage: 10 mg, UNK
  16. VERAMYST [Concomitant]
     Dosage: 27.5 ?g, UNK
  17. DOCUSATE CALCIUM [Concomitant]
     Dosage: 240 mg, UNK
  18. SYMBICORT [Concomitant]
     Dosage: 80-4.5
  19. PROZAC [Concomitant]
     Dosage: 10 mg, UNK
  20. NAMENDA [Concomitant]
     Dosage: 10 mg, UNK
  21. ALBUTEROL [Concomitant]
     Dosage: 1.25 mg/3
  22. AMANTADINE [Concomitant]
     Dosage: 100 mg, UNK
  23. DEXILANT [Concomitant]
     Dosage: 30 mg, UNK

REACTIONS (3)
  - Nausea [Unknown]
  - Vomiting [Unknown]
  - Fungal infection [Unknown]
